FAERS Safety Report 7286538-0 (Version None)
Quarter: 2011Q1

REPORT INFORMATION
  Report Type: 
  Country: None (occurrence: None)
  Receive Date: 20110210
  Receipt Date: 20110127
  Transmission Date: 20110831
  Serious: Yes (Other)
  Sender: FDA-Public Use
  Company Number: JP-CELGENEUS-087-21880-10113313

PATIENT
  Sex: Female
  Weight: 45 kg

DRUGS (7)
  1. REVLIMID [Suspect]
     Route: 048
     Dates: start: 20101204, end: 20101214
  2. LENADEX [Suspect]
     Route: 048
     Dates: start: 20101204, end: 20101207
  3. LENADEX [Suspect]
     Route: 048
     Dates: start: 20101212, end: 20101214
  4. REVLIMID [Suspect]
     Route: 048
     Dates: start: 20101106, end: 20101126
  5. LENADEX [Suspect]
     Route: 048
     Dates: start: 20101106, end: 20101125
  6. REVLIMID [Suspect]
     Indication: MULTIPLE MYELOMA
     Route: 048
     Dates: start: 20101009, end: 20101029
  7. LENADEX [Suspect]
     Indication: MULTIPLE MYELOMA
     Route: 048
     Dates: start: 20101009, end: 20101026

REACTIONS (7)
  - GASTRIC ULCER [None]
  - DIABETES MELLITUS [None]
  - DIARRHOEA [None]
  - ECZEMA [None]
  - DYSGEUSIA [None]
  - MALAISE [None]
  - NEUROPATHY PERIPHERAL [None]
